FAERS Safety Report 10462387 (Version 1)
Quarter: 2014Q3

REPORT INFORMATION
  Report Type: Report from Study
  Country: US (occurrence: US)
  Receive Date: 20140918
  Receipt Date: 20140918
  Transmission Date: 20150326
  Serious: No
  Sender: FDA-Public Use
  Company Number: US-ALEXION-A201305697

PATIENT

DRUGS (1)
  1. SOLIRIS [Suspect]
     Active Substance: ECULIZUMAB
     Indication: PAROXYSMAL NOCTURNAL HAEMOGLOBINURIA
     Dosage: UNK
     Route: 042

REACTIONS (10)
  - Chest discomfort [Unknown]
  - Fatigue [Unknown]
  - Hepatomegaly [Unknown]
  - Temperature intolerance [Unknown]
  - Weight decreased [Unknown]
  - Hypoacusis [Unknown]
  - Neck pain [Unknown]
  - Oral disorder [Unknown]
  - Visual impairment [Unknown]
  - Headache [Unknown]
